FAERS Safety Report 8757519 (Version 2)
Quarter: 2012Q4

REPORT INFORMATION
  Report Type: 
  Country: US (occurrence: US)
  Receive Date: 20120828
  Receipt Date: 20120914
  Transmission Date: 20130627
  Serious: Yes (Hospitalization)
  Sender: FDA-Public Use
  Company Number: US-VERTEX PHARMACEUTICAL INC.-2012-019735

PATIENT
  Age: 55 Year
  Sex: Female
  Weight: 57 kg

DRUGS (7)
  1. VX-950 [Suspect]
     Indication: HEPATITIS C
     Dosage: 750 mg, tid
     Route: 048
     Dates: start: 20120728
  2. PEGINTRON                          /01543001/ [Concomitant]
     Indication: HEPATITIS C
     Dosage: 80 ?g, UNK
     Route: 058
     Dates: start: 20120728
  3. RIBAVIRIN [Concomitant]
     Indication: HEPATITIS C
     Dosage: 2 DF, bid
     Route: 048
     Dates: start: 20120728
  4. RIBAVIRIN [Concomitant]
     Dosage: 1 DF, bid
     Route: 048
     Dates: start: 20120829
  5. HUMALOG BASAL [Concomitant]
     Indication: DIABETES MELLITUS
     Dosage: UNK, prn
     Route: 048
  6. CELEXA                             /00582602/ [Concomitant]
     Indication: DEPRESSION
     Dosage: 20 mg, UNK
     Route: 048
  7. REMERON [Concomitant]
     Indication: DEPRESSION
     Dosage: 10 mg, UNK
     Route: 048

REACTIONS (8)
  - Dehydration [Recovered/Resolved]
  - Colostomy infection [Not Recovered/Not Resolved]
  - Dyspnoea [Not Recovered/Not Resolved]
  - Decreased appetite [Not Recovered/Not Resolved]
  - Anaemia [Not Recovered/Not Resolved]
  - Diarrhoea [Recovered/Resolved]
  - Nausea [Not Recovered/Not Resolved]
  - Drug dose omission [Recovered/Resolved]
